FAERS Safety Report 22036379 (Version 1)
Quarter: 2023Q1

REPORT INFORMATION
  Report Type: Spontaneous
  Country: US (occurrence: US)
  Receive Date: 20230225
  Receipt Date: 20230225
  Transmission Date: 20230417
  Serious: No
  Sender: FDA-Public Use
  Company Number: US-002147023-NVSC2023US044023

PATIENT
  Sex: Female

DRUGS (1)
  1. PROMACTA [Suspect]
     Active Substance: ELTROMBOPAG OLAMINE
     Indication: Immune thrombocytopenia
     Dosage: 12.5 MG (1 TABLET, MONDAY, WEDNESDAY, AND FRIDAY)
     Route: 048
     Dates: start: 202212

REACTIONS (2)
  - Night sweats [Unknown]
  - Dysuria [Recovering/Resolving]
